FAERS Safety Report 11336826 (Version 1)
Quarter: 2015Q3

REPORT INFORMATION
  Report Type: Other
  Country: GB (occurrence: GB)
  Receive Date: 20150804
  Receipt Date: 20150804
  Transmission Date: 20151125
  Serious: Yes (Hospitalization)
  Sender: FDA-Public Use
  Company Number: GB-MYLANLABS-2015M1025057

PATIENT

DRUGS (28)
  1. TIOTROPIUM BROMIDE [Concomitant]
     Active Substance: TIOTROPIUM BROMIDE
     Dosage: 18 ?G, QD
     Route: 055
  2. FUROSEMIDE. [Concomitant]
     Active Substance: FUROSEMIDE
     Dosage: 80 MG, BID (RECENTLY INCREASED)
  3. GABAPENTIN. [Suspect]
     Active Substance: GABAPENTIN
     Dosage: 100 MG, TID (INCREASING DOSE AT WEEKLY INTERVALS)
     Dates: start: 20150603
  4. GABAPENTIN. [Suspect]
     Active Substance: GABAPENTIN
     Dosage: 200 MG, TID (INCREASING DOSE AT WEEKLY INTERVALS)
  5. SENNA [Concomitant]
     Active Substance: SENNA LEAF\SENNOSIDES\SENNOSIDES A AND B
     Dosage: 15 MG, QD (AT NIGHT)
  6. LOSARTAN. [Concomitant]
     Active Substance: LOSARTAN
     Dosage: 50 MG, QD
  7. TAMSULOSIN [Concomitant]
     Active Substance: TAMSULOSIN
     Dosage: 400 ?G, QD (MODIFIED RELEASE)
  8. WARFARIN [Concomitant]
     Active Substance: WARFARIN
     Dosage: 51 MG, QW (8 MG MONDAY AND FRIDAY. 7 MG OTHER DAYS. (TARGET INTERNATIONAL NORMALISED RATIO 2.5)
  9. LANTUS [Concomitant]
     Active Substance: INSULIN GLARGINE
     Dosage: 16 IU, QD (16 UNITS EVERY MORNING. 100 UNITS/ML)
  10. SERETIDE [Concomitant]
     Active Substance: FLUTICASONE FUROATE\SALMETEROL XINAFOATE
     Dosage: 2 DF, BID (2 PUFFS)
     Route: 055
  11. METFORMIN [Concomitant]
     Active Substance: METFORMIN HYDROCHLORIDE
     Dosage: 500 MG, TID
  12. SALBUTAMOL [Concomitant]
     Active Substance: ALBUTEROL
     Dosage: UNK, AS NECESSARY
     Route: 055
  13. PARACETAMOL [Concomitant]
     Active Substance: ACETAMINOPHEN
     Dosage: 1 G, QID
  14. SPIRONOLACTONE. [Concomitant]
     Active Substance: SPIRONOLACTONE
     Dosage: 25 MG, QD
  15. CAPASAL [Concomitant]
  16. MOVICOL [Concomitant]
     Active Substance: POLYETHYLENE GLYCOL 3350\POTASSIUM CHLORIDE\SODIUM BICARBONATE\SODIUM CHLORIDE
     Dosage: 13.8 G, BID
     Route: 048
  17. BISOPROLOL [Concomitant]
     Active Substance: BISOPROLOL
     Dosage: 2.5 MG, QD
  18. ISOSORBIDE MONONITRATE. [Concomitant]
     Active Substance: ISOSORBIDE MONONITRATE
     Dosage: 90 MG, QD (MODIFIED RELEASE)
  19. MORPHINE [Concomitant]
     Active Substance: MORPHINE
     Dosage: 5 MG, AS NECESSARY
  20. NICORANDIL [Concomitant]
     Active Substance: NICORANDIL
     Dosage: 20 MG, BID
  21. RANITIDINE [Concomitant]
     Active Substance: RANITIDINE\RANITIDINE HYDROCHLORIDE
     Dosage: 150 MG, BID
  22. GABAPENTIN. [Suspect]
     Active Substance: GABAPENTIN
     Dosage: 300 MG, TID(INCREASING DOSE AT WEEKLY INTERVALS)
  23. ATORVASTATIN [Concomitant]
     Active Substance: ATORVASTATIN
     Dosage: 80 MG, QD
  24. DOCUSATE [Concomitant]
     Active Substance: DOCUSATE
     Dosage: 100 MG, TWICE DAILY AS REQUIRED
  25. GLYCERYL TRINITRATE [Concomitant]
     Active Substance: NITROGLYCERIN
     Dosage: 400 ?G, AS NECESSARY
     Route: 060
  26. CODEINE [Concomitant]
     Active Substance: CODEINE
     Dosage: 60 MG, QID
  27. FERROUS FUMARATE [Concomitant]
     Active Substance: FERROUS FUMARATE
     Dosage: 210 MG, BID
  28. MORPHINE [Concomitant]
     Active Substance: MORPHINE
     Dosage: 40 MG, BID (MODIFIED RELEASE. INCREASED FROM 15MG TWICE A DAY)
     Dates: start: 201506

REACTIONS (3)
  - Tremor [Recovered/Resolved]
  - Abnormal weight gain [Unknown]
  - Dyskinesia [Recovered/Resolved]

NARRATIVE: CASE EVENT DATE: 20150610
